FAERS Safety Report 5630838-4 (Version None)
Quarter: 2008Q1

REPORT INFORMATION
  Report Type: 
  Country: None (occurrence: None)
  Receive Date: 20080219
  Receipt Date: 20080208
  Transmission Date: 20080703
  Serious: Yes (Other)
  Sender: FDA-Public Use
  Company Number: JP-ASTRAZENECA-2008AP01070

PATIENT
  Age: 79 Year
  Sex: Female

DRUGS (11)
  1. SEROQUEL [Suspect]
     Indication: DEPRESSION
     Route: 048
  2. LUVOX [Suspect]
     Indication: DEPRESSION
     Route: 048
  3. DOPACOL [Concomitant]
     Route: 048
  4. BI-SIFROL [Concomitant]
     Route: 048
  5. RENIVEZE [Concomitant]
     Route: 048
  6. FUROSEMIDE [Concomitant]
     Route: 048
  7. LANIRAPID [Concomitant]
     Route: 048
  8. ASPIRIN [Concomitant]
     Route: 048
  9. WARFARIN SODIUM [Concomitant]
     Route: 048
  10. VASOLAN [Concomitant]
     Route: 048
  11. MAGMITT [Concomitant]
     Route: 048

REACTIONS (1)
  - DEMENTIA [None]
